FAERS Safety Report 14541213 (Version 1)
Quarter: 2018Q1

REPORT INFORMATION
  Report Type: Spontaneous
  Country: NO (occurrence: NO)
  Receive Date: 20180216
  Receipt Date: 20180216
  Transmission Date: 20180509
  Serious: Yes (Other)
  Sender: FDA-Public Use
  Company Number: NO-OTSUKA-DJ20110961

PATIENT
  Age: 28 Year
  Sex: Female

DRUGS (1)
  1. ARIPIPRAZOLE. [Suspect]
     Active Substance: ARIPIPRAZOLE
     Indication: PRODUCT USED FOR UNKNOWN INDICATION
     Dosage: UNK
     Route: 065

REACTIONS (11)
  - Salivary hypersecretion [Recovered/Resolved]
  - Photophobia [Not Recovered/Not Resolved]
  - Metabolic disorder [Recovered/Resolved]
  - Nausea [Recovering/Resolving]
  - Weight increased [Recovered/Resolved]
  - Aggression [Recovering/Resolving]
  - Self-injurious ideation [Recovering/Resolving]
  - Liver function test abnormal [Recovering/Resolving]
  - Myalgia [Not Recovered/Not Resolved]
  - Suicidal ideation [Recovering/Resolving]
  - Diarrhoea [Not Recovered/Not Resolved]
